FAERS Safety Report 8479833-0 (Version None)
Quarter: 2012Q2

REPORT INFORMATION
  Report Type: 
  Country: None (occurrence: None)
  Receive Date: 20120629
  Receipt Date: 20120619
  Transmission Date: 20120825
  Serious: Yes (Hospitalization)
  Sender: FDA-Public Use
  Company Number: JP-VERTEX PHARMACEUTICALS INC.-AE-2012-004278

PATIENT
  Age: 57 Year
  Sex: Female

DRUGS (18)
  1. TELAVIC (TELAPREVIR) [Suspect]
     Route: 048
     Dates: start: 20120203
  2. REBETOL [Concomitant]
     Route: 048
     Dates: start: 20120312, end: 20120318
  3. MAGMITT [Concomitant]
     Route: 048
  4. REBETOL [Concomitant]
     Indication: HEPATITIS C
     Route: 048
     Dates: start: 20120130, end: 20120304
  5. REBETOL [Concomitant]
     Route: 048
     Dates: start: 20120319, end: 20120325
  6. PEGINTERFERON ALFA-2B [Concomitant]
     Indication: HEPATITIS C
     Route: 058
     Dates: start: 20120130, end: 20120226
  7. REBETOL [Concomitant]
     Route: 048
     Dates: start: 20120305, end: 20120311
  8. REBETOL [Concomitant]
     Route: 048
     Dates: start: 20120402, end: 20120415
  9. BROTIZOLAM [Concomitant]
     Route: 048
  10. TELAVIC (TELAPREVIR) [Suspect]
     Indication: HEPATITIS C
     Route: 048
     Dates: start: 20120130, end: 20120203
  11. LENDORMIN D [Concomitant]
     Route: 048
     Dates: start: 20120312, end: 20120318
  12. CLARITIN [Concomitant]
     Route: 048
  13. CRESTOR [Concomitant]
     Route: 048
     Dates: start: 20120213
  14. REBETOL [Concomitant]
     Route: 048
     Dates: start: 20120416
  15. PEGINTERFERON ALFA-2B [Concomitant]
     Route: 058
     Dates: start: 20120227, end: 20120227
  16. PEGINTERFERON ALFA-2B [Concomitant]
     Route: 058
     Dates: start: 20120305
  17. MUCOSTA [Concomitant]
     Route: 048
     Dates: start: 20120416
  18. RABEPRAZOLE SODIUM [Concomitant]
     Route: 048

REACTIONS (1)
  - DRUG ERUPTION [None]
